FAERS Safety Report 9848523 (Version 2)
Quarter: 2014Q1

REPORT INFORMATION
  Report Type: Spontaneous
  Country: GB (occurrence: GB)
  Receive Date: 20140128
  Receipt Date: 20140128
  Transmission Date: 20141002
  Serious: Yes (Hospitalization, Other)
  Sender: FDA-Public Use
  Company Number: PHFR2013GB005058

PATIENT
  Age: 24 Year
  Sex: Male
  Weight: 92.8 kg

DRUGS (4)
  1. CLOZARIL [Suspect]
     Indication: SCHIZOPHRENIA
     Dosage: 12.5 MG, DAILY
     Route: 048
     Dates: start: 20130808
  2. CLOZARIL [Suspect]
     Dosage: 300 MG, DAILY
     Route: 048
     Dates: end: 20130827
  3. MIRTAZAPINE [Concomitant]
     Indication: DEPRESSED MOOD
     Dosage: 30 MG, DAILY
     Route: 048
  4. OMEPRAZOLE [Concomitant]
     Indication: DYSPEPSIA
     Dosage: 20 MG, DAILY
     Route: 048

REACTIONS (8)
  - Pain [Unknown]
  - Myocarditis [Recovered/Resolved]
  - Influenza like illness [Unknown]
  - Chest pain [Unknown]
  - Troponin T increased [Unknown]
  - C-reactive protein increased [Unknown]
  - Eosinophil count increased [Unknown]
  - Sinus tachycardia [Unknown]
